FAERS Safety Report 24767798 (Version 3)
Quarter: 2025Q1

REPORT INFORMATION
  Report Type: Spontaneous
  Country: DE (occurrence: DE)
  Receive Date: 20241223
  Receipt Date: 20250207
  Transmission Date: 20250409
  Serious: Yes (Other)
  Sender: VERITY PHARMACEUTICALS INC.
  Company Number: DE-VER-202400016

PATIENT
  Age: 63 Year
  Sex: Male

DRUGS (2)
  1. TRIPTORELIN PAMOATE [Suspect]
     Active Substance: TRIPTORELIN PAMOATE
     Indication: Paraphilia
     Dosage: POWDER AND SOLVENT FOR SUSPENSION FOR INJECTION
     Route: 030
  2. RISEDRONATE SODIUM [Concomitant]
     Active Substance: RISEDRONATE SODIUM
     Indication: Osteoporosis
     Route: 065

REACTIONS (2)
  - Retroperitoneal fibrosis [Not Recovered/Not Resolved]
  - Aortic aneurysm rupture [Unknown]

NARRATIVE: CASE EVENT DATE: 20240901
